FAERS Safety Report 15624402 (Version 1)
Quarter: 2018Q4

REPORT INFORMATION
  Report Type: Spontaneous
  Country: FI (occurrence: FI)
  Receive Date: 20181116
  Receipt Date: 20181116
  Transmission Date: 20190205
  Serious: Yes (Hospitalization)
  Sender: FDA-Public Use
  Company Number: FI-ROCHE-2202986

PATIENT
  Age: 38 Year
  Sex: Female

DRUGS (23)
  1. IMODIUM [Concomitant]
     Active Substance: LOPERAMIDE HYDROCHLORIDE
     Indication: DIARRHOEA
     Dosage: MAXIMUM DAILY DOSE 6 CAPSULES, AS NEEDED
     Route: 048
  2. DERMOVAT CREME [Concomitant]
     Indication: PSORIASIS
     Dosage: AS NEEDED
     Route: 065
  3. DAIVOBET [Concomitant]
     Active Substance: BETAMETHASONE DIPROPIONATE\CALCIPOTRIENE
     Indication: PSORIASIS
     Dosage: AS NEEDED
     Route: 065
  4. PROTOPIC [Concomitant]
     Active Substance: TACROLIMUS
     Indication: PSORIASIS
     Dosage: AS NEEDED
     Route: 065
  5. VAGIFEM [Concomitant]
     Active Substance: ESTRADIOL
     Route: 067
  6. ESTROFEM [Concomitant]
     Active Substance: ESTRADIOL CYPIONATE
     Route: 048
  7. CETIRIZINE [Concomitant]
     Active Substance: CETIRIZINE HYDROCHLORIDE
     Route: 065
  8. LEVOLAC [Concomitant]
     Active Substance: LACTULOSE
     Dosage: AS NEEDED
     Route: 065
  9. PEVISONE [Concomitant]
     Active Substance: ECONAZOLE
     Indication: PSORIASIS
     Dosage: AS NEEDED
     Route: 065
  10. KALCIPOS-D [Concomitant]
     Active Substance: CALCIUM CARBONATE\CHOLECALCIFEROL
     Dosage: 500MG/400IU
     Route: 048
  11. HISTEC [Concomitant]
     Active Substance: CETIRIZINE HYDROCHLORIDE
     Dosage: AS NEEDED
     Route: 048
  12. IMOVANE [Concomitant]
     Active Substance: ZOPICLONE
     Dosage: AS NEEDED
     Route: 048
  13. OPAMOX [Concomitant]
     Active Substance: OXAZEPAM
     Dosage: AS NEEDED
     Route: 048
  14. PANADOL FORTE [Concomitant]
     Dosage: MAXIMUM DAILY DOSE 3G, AS NEEDED
     Route: 048
  15. DIPROSALIC [Concomitant]
     Active Substance: BETAMETHASONE DIPROPIONATE
     Dosage: AS NEEDED
     Route: 065
  16. METHYLPREDNISOLONE. [Concomitant]
     Active Substance: METHYLPREDNISOLONE
     Route: 065
     Dates: start: 20181003
  17. MELATONIN [Concomitant]
     Active Substance: MELATONIN
     Dosage: AS NEEDED
     Route: 048
  18. OCREVUS [Suspect]
     Active Substance: OCRELIZUMAB
     Indication: MULTIPLE SCLEROSIS
     Dosage: MOST RECENT DOSE WAS RECEIVED ON 17/OCT/2018
     Route: 042
     Dates: start: 20181003
  19. CARDACE (FINLAND) [Concomitant]
     Dosage: 5,MG,DAILY
     Route: 048
  20. BURANA [Concomitant]
     Active Substance: IBUPROFEN
     Indication: PAIN
     Dosage: MAXIMUM TOTAL DAILY DOSE 1800MG, AS NEEDED
     Route: 048
  21. SEPRAM [Concomitant]
     Active Substance: CITALOPRAM HYDROBROMIDE
     Indication: DEPRESSION
     Route: 048
  22. PARACETAMOL [Concomitant]
     Active Substance: ACETAMINOPHEN
     Route: 065
     Dates: start: 20181003
  23. TENOX (FINLAND) [Concomitant]
     Dosage: 0.5-1 TABLET AS NEEDED
     Route: 048

REACTIONS (2)
  - Vision blurred [Not Recovered/Not Resolved]
  - Blood pressure increased [Not Recovered/Not Resolved]

NARRATIVE: CASE EVENT DATE: 20181017
